FAERS Safety Report 21823163 (Version 1)
Quarter: 2023Q1

REPORT INFORMATION
  Report Type: Spontaneous
  Country: US (occurrence: US)
  Receive Date: 20230105
  Receipt Date: 20230105
  Transmission Date: 20230418
  Serious: No
  Sender: FDA-Public Use
  Company Number: US-AMNEAL PHARMACEUTICALS-2022-AMRX-00168

PATIENT
  Sex: Female

DRUGS (1)
  1. BETHANECHOL CHLORIDE [Suspect]
     Active Substance: BETHANECHOL CHLORIDE
     Indication: Urinary incontinence
     Dosage: 50 MILLIGRAM, 2 /DAY
     Route: 048

REACTIONS (2)
  - Therapeutic product effect variable [Unknown]
  - Product physical issue [Unknown]
